FAERS Safety Report 8180840-6 (Version None)
Quarter: 2012Q1

REPORT INFORMATION
  Report Type: 
  Country: None (occurrence: None)
  Receive Date: 20120302
  Receipt Date: 20120217
  Transmission Date: 20120608
  Serious: Yes (Other)
  Sender: FDA-Public Use
  Company Number: ES-WATSON-2012-02890

PATIENT
  Age: 74 Year
  Sex: Male

DRUGS (2)
  1. TELMISARTAN [Concomitant]
     Indication: PRODUCT USED FOR UNKNOWN INDICATION
     Dosage: 40 MG TABLETS, ONCE DAILY
     Route: 048
     Dates: start: 20070101
  2. RAPAFLO [Suspect]
     Indication: PRODUCT USED FOR UNKNOWN INDICATION
     Dosage: 8 MG CAPSULE DAILY
     Route: 048
     Dates: start: 20110119

REACTIONS (2)
  - HEADACHE [None]
  - HYPERTENSION [None]
